FAERS Safety Report 17749651 (Version 2)
Quarter: 2020Q4

REPORT INFORMATION
  Report Type: Spontaneous
  Country: ZA (occurrence: ZA)
  Receive Date: 20200506
  Receipt Date: 20201122
  Transmission Date: 20210113
  Serious: No
  Sender: FDA-Public Use
  Company Number: ZA-AMGEN-ZAFSP2018036044

PATIENT
  Age: 36 Year
  Sex: Female
  Weight: 117 kg

DRUGS (3)
  1. METHOTREXATE. [Concomitant]
     Active Substance: METHOTREXATE
     Dosage: 15 MILLIGRAM, QWK
     Dates: start: 20151001
  2. ARAVA [Concomitant]
     Active Substance: LEFLUNOMIDE
     Dosage: 20 MILLIGRAM, QD
     Dates: start: 20161028
  3. ENBREL [Suspect]
     Active Substance: ETANERCEPT
     Indication: RHEUMATOID ARTHRITIS
     Dosage: 50 MILLIGRAM, QWK
     Route: 058
     Dates: start: 20171012

REACTIONS (7)
  - Red blood cell hypochromic morphology present [Unknown]
  - Fungal test positive [Unknown]
  - Iron deficiency [Unknown]
  - Therapeutic product effect incomplete [Unknown]
  - Mean cell haemoglobin concentration decreased [Recovered/Resolved]
  - Leukocytosis [Unknown]
  - Urinary sediment present [Unknown]

NARRATIVE: CASE EVENT DATE: 20181105
